FAERS Safety Report 5930657-5 (Version None)
Quarter: 2008Q4

REPORT INFORMATION
  Report Type: 
  Country: None (occurrence: None)
  Receive Date: 20081007
  Receipt Date: 20040813
  Transmission Date: 20090506
  Serious: Yes (Other)
  Sender: FDA-Public Use
  Company Number: 20040057USST

PATIENT
  Age: 23 Year
  Sex: Male
  Weight: 24.9478 kg

DRUGS (5)
  1. CARNITOR [Suspect]
     Indication: CARNITINE DEFICIENCY
     Dosage: 330 MG, 1/4 TAB QD, ORAL
     Route: 048
     Dates: start: 20040701, end: 20040807
  2. DEPAKOTE [Concomitant]
  3. DILANTIN [Concomitant]
  4. VALIUM [Concomitant]
  5. PFD2 FORMULA (CARNITINE) [Concomitant]

REACTIONS (2)
  - CONVULSION [None]
  - MUSCLE SPASMS [None]
